FAERS Safety Report 6763846-0 (Version None)
Quarter: 2010Q2

REPORT INFORMATION
  Report Type: 
  Country: None (occurrence: None)
  Receive Date: 20100610
  Receipt Date: 20100602
  Transmission Date: 20101027
  Serious: Yes (Hospitalization)
  Sender: FDA-Public Use
  Company Number: AU-PFIZER INC-2010069488

PATIENT
  Age: 46 Year
  Sex: Female
  Weight: 116 kg

DRUGS (1)
  1. CHAMPIX [Suspect]
     Indication: SMOKING CESSATION THERAPY
     Dosage: 1 MG, 2X/DAY
     Route: 048

REACTIONS (3)
  - ABDOMINAL PAIN [None]
  - ASTHENIA [None]
  - BLOOD POTASSIUM DECREASED [None]
